FAERS Safety Report 10189130 (Version 1)
Quarter: 2014Q2

REPORT INFORMATION
  Report Type: Report from Study
  Country: US (occurrence: US)
  Receive Date: 20140522
  Receipt Date: 20140522
  Transmission Date: 20141212
  Serious: Yes (Other)
  Sender: FDA-Public Use
  Company Number: US-ABBVIE-14P-163-1238480-00

PATIENT
  Age: 26 Year
  Sex: Female
  Weight: 97.61 kg

DRUGS (3)
  1. HUMIRA [Suspect]
     Indication: PSORIASIS
     Dates: start: 2013
  2. ZOFRAN [Concomitant]
     Indication: PRODUCT USED FOR UNKNOWN INDICATION
  3. HYDROCODONE/ACETAMINOPHEN [Concomitant]
     Indication: PRODUCT USED FOR UNKNOWN INDICATION

REACTIONS (5)
  - Exostosis [Recovered/Resolved]
  - Fibroma [Recovered/Resolved]
  - Nerve compression [Not Recovered/Not Resolved]
  - Gastric bypass [Recovered/Resolved]
  - Oedema peripheral [Not Recovered/Not Resolved]
